FAERS Safety Report 7512826-6 (Version None)
Quarter: 2011Q2

REPORT INFORMATION
  Report Type: 
  Country: None (occurrence: None)
  Receive Date: 20110531
  Receipt Date: 20110517
  Transmission Date: 20111010
  Serious: Yes (Hospitalization)
  Sender: FDA-Public Use
  Company Number: HR-ELI_LILLY_AND_COMPANY-HR201103004161

PATIENT
  Age: 54 Year
  Sex: Male

DRUGS (6)
  1. PRAZINE [Concomitant]
     Dosage: 100 MG, 3/D
     Dates: start: 20110209
  2. SULPIRID [Concomitant]
     Dosage: 400 MG, DAILY (1/D)
     Dates: start: 20110209, end: 20110216
  3. ZYPREXA [Suspect]
     Indication: DELUSIONAL DISORDER, UNSPECIFIED TYPE
     Dosage: 10 MG, DAILY (1/D)
     Route: 030
     Dates: start: 20110209, end: 20110216
  4. ZYPREXA [Suspect]
     Dosage: 10 MG, 3/D
     Route: 030
     Dates: start: 20110216, end: 20110226
  5. DEPAKENE [Concomitant]
     Dosage: 700 MG, 3/D
     Dates: start: 20110216
  6. FEVARIN [Concomitant]
     Dosage: 200 MG, 2/D
     Dates: start: 20110209

REACTIONS (3)
  - OFF LABEL USE [None]
  - PSYCHOTIC DISORDER [None]
  - OVERDOSE [None]
